FAERS Safety Report 4641765-3 (Version None)
Quarter: 2005Q2

REPORT INFORMATION
  Report Type: 
  Country: None (occurrence: None)
  Receive Date: 20050421
  Receipt Date: 20050404
  Transmission Date: 20051028
  Serious: Yes (Hospitalization)
  Sender: FDA-Public Use
  Company Number: A-US2005-08724

PATIENT
  Age: 72 Year
  Sex: Female

DRUGS (11)
  1. TRACLEER [Suspect]
     Indication: PULMONARY HYPERTENSION
     Dosage: SEE IMAGE
     Route: 048
     Dates: start: 20041001, end: 20041101
  2. TRACLEER [Suspect]
     Indication: PULMONARY HYPERTENSION
     Dosage: SEE IMAGE
     Route: 048
     Dates: start: 20041201, end: 20050101
  3. TRACLEER [Suspect]
     Indication: PULMONARY HYPERTENSION
     Dosage: SEE IMAGE
     Route: 048
     Dates: start: 20050101
  4. CELEBREX [Concomitant]
  5. DIOVAN ^CIBA-GEIGY^ (VALSARTAN) [Concomitant]
  6. PROMETHAZINE [Concomitant]
  7. FLURAZEPAM [Concomitant]
  8. COUMADIN [Concomitant]
  9. OXYCODONE (OXYCODONE) [Concomitant]
  10. METROCREAM [Concomitant]
  11. POLYETHYLENE GLYCOL (MACROGOL) [Concomitant]

REACTIONS (6)
  - BURNING SENSATION [None]
  - DRY SKIN [None]
  - FLUSHING [None]
  - GASTRIC DISORDER [None]
  - NAUSEA [None]
  - SKIN WRINKLING [None]
